FAERS Safety Report 4374381-1 (Version None)
Quarter: 2004Q2

REPORT INFORMATION
  Report Type: 
  Country: None (occurrence: None)
  Receive Date: 20040608
  Receipt Date: 20040608
  Transmission Date: 20050107
  Serious: No
  Sender: FDA-Public Use
  Company Number: None

PATIENT
  Sex: Male
  Weight: 58.9676 kg

DRUGS (4)
  1. TENOFOVIR [Suspect]
     Indication: HIV INFECTION
     Dosage: 300 MG QD ORAL
     Route: 048
     Dates: start: 20020511, end: 20030522
  2. KALETRA [Concomitant]
  3. DIDANOSINE [Concomitant]
  4. SAQUINAVIR [Concomitant]

REACTIONS (1)
  - RENAL FAILURE ACUTE [None]
